FAERS Safety Report 8809864 (Version 1)
Quarter: 2012Q4

REPORT INFORMATION
  Report Type: 
  Country: US (occurrence: US)
  Receive Date: 20120926
  Receipt Date: 20120926
  Transmission Date: 20130627
  Serious: Yes (Death)
  Sender: FDA-Public Use
  Company Number: US-ROCHE-1129314

PATIENT
  Sex: Male

DRUGS (3)
  1. AVASTIN [Suspect]
     Indication: BRAIN NEOPLASM MALIGNANT
  2. TEMODAR [Concomitant]
     Route: 065
     Dates: end: 200802
  3. IRINOTECAN [Concomitant]

REACTIONS (4)
  - Nausea [Unknown]
  - Vomiting [Unknown]
  - Dehydration [Unknown]
  - Death [Fatal]
